FAERS Safety Report 10047482 (Version 3)
Quarter: 2014Q2

REPORT INFORMATION
  Report Type: Spontaneous
  Country: BE (occurrence: BE)
  Receive Date: 20140331
  Receipt Date: 20140428
  Transmission Date: 20141212
  Serious: Yes (Life-Threatening, Hospitalization, Other)
  Sender: FDA-Public Use
  Company Number: BE-JNJFOC-20140316057

PATIENT
  Age: 59 Year
  Sex: Male

DRUGS (4)
  1. XARELTO [Suspect]
     Indication: EMBOLISM VENOUS
     Route: 048
     Dates: start: 20140125, end: 20140317
  2. XARELTO [Suspect]
     Indication: DEEP VEIN THROMBOSIS
     Route: 048
     Dates: start: 20140125, end: 20140317
  3. TRAMADOL [Concomitant]
     Route: 065
  4. PRIMIDON [Concomitant]
     Route: 065

REACTIONS (3)
  - Laryngeal haematoma [Recovered/Resolved]
  - Pneumonia [Unknown]
  - Thrombocytopenia [Recovered/Resolved]
